FAERS Safety Report 5193688-1 (Version None)
Quarter: 2006Q4

REPORT INFORMATION
  Report Type: 
  Country: None (occurrence: None)
  Receive Date: 20061228
  Receipt Date: 20061107
  Transmission Date: 20070319
  Serious: Yes (Hospitalization)
  Sender: FDA-Public Use
  Company Number: FR-ROCHE-470128

PATIENT
  Age: 30 Year
  Sex: Male

DRUGS (8)
  1. ROVALCYTE [Suspect]
     Indication: LUNG TRANSPLANT
     Route: 048
     Dates: start: 20060910, end: 20061016
  2. CELLCEPT [Concomitant]
     Indication: LUNG TRANSPLANT
     Route: 048
     Dates: start: 20060812, end: 20061013
  3. FLAGYL [Concomitant]
     Route: 048
     Dates: end: 20061013
  4. PROGRAF [Concomitant]
  5. CORTANCYL [Concomitant]
  6. PRAVASTATIN [Concomitant]
  7. ZITHROMAX [Concomitant]
  8. VORICONAZOLE [Concomitant]

REACTIONS (3)
  - LYMPHOPENIA [None]
  - NEUTROPENIA [None]
  - WHITE BLOOD CELL COUNT DECREASED [None]
